FAERS Safety Report 9512620 (Version 1)
Quarter: 2013Q1

REPORT INFORMATION
  Report Type: Spontaneous
  Country: US (occurrence: None)
  Receive Date: 20130305
  Receipt Date: 20130305
  Transmission Date: 20140127
  Serious: Yes (Other)
  Sender: FDA-Public Use
  Company Number: 163-21880-12090709

PATIENT
  Age: 73 Year
  Sex: Female

DRUGS (6)
  1. REVLIMID [Suspect]
     Indication: MYELODYSPLASTIC SYNDROME
     Dosage: 21 IN 28 D
     Route: 048
     Dates: start: 20120107
  2. LOVASTATIN [Concomitant]
  3. LEXAPRO [Concomitant]
  4. CYANOCOBALAMIN [Concomitant]
  5. SPIRIVA [Concomitant]
  6. THEOPHYLLINE [Concomitant]

REACTIONS (2)
  - Full blood count decreased [None]
  - Neutropenia [None]
